FAERS Safety Report 8402918 (Version 2)
Quarter: 2014Q1

REPORT INFORMATION
  Report Type: Spontaneous
  Country: US (occurrence: US)
  Receive Date: 20120213
  Receipt Date: 20140121
  Transmission Date: 20141002
  Serious: Yes (Other)
  Sender: FDA-Public Use
  Company Number: US-BAYER-2012-013700

PATIENT
  Age: 27 Year
  Sex: Female

DRUGS (6)
  1. YAZ [Suspect]
     Dosage: UNK
     Dates: start: 200810, end: 200911
  2. ALPRAZOLAM [Concomitant]
     Dosage: 5 TO 25 MG DAILY AS NEEDED
     Route: 048
  3. HYDROCODONE/ACETAMINOPHEN [Concomitant]
     Indication: PAIN
     Dosage: 5/325 TO 5/500 MG, 1 TO 2 EVERY 4 TO 6 HOURS AS NEEDED
     Route: 048
     Dates: start: 20091006, end: 20091102
  4. DICYCLOMINE [Concomitant]
     Dosage: 20 MG 4 TIMES A DAY AS NEEDED
     Route: 048
     Dates: start: 20091006
  5. HYOSCYAMINE SULFATE [Concomitant]
     Dosage: 125 MG EVERY 4 HOURS AS NEEDED
     Route: 048
     Dates: start: 20091027
  6. POLYETHYLENE GLYCOL [Concomitant]
     Dosage: 1 CAPFUL IN 4 [TO] 8 OUNCES OF FLUID DAILY
     Dates: start: 20091027

REACTIONS (9)
  - Gallbladder disorder [None]
  - Gallbladder pain [None]
  - Anxiety [None]
  - Anhedonia [None]
  - Injury [None]
  - Psychological trauma [None]
  - Post cholecystectomy syndrome [None]
  - Gastrointestinal disorder [None]
  - Cholecystitis chronic [None]
